FAERS Safety Report 18140426 (Version 1)
Quarter: 2020Q3

REPORT INFORMATION
  Report Type: Spontaneous
  Country: US (occurrence: US)
  Receive Date: 20200812
  Receipt Date: 20200812
  Transmission Date: 20201103
  Serious: Yes (Other)
  Sender: FDA-Public Use
  Company Number: None

PATIENT
  Age: 58 Year
  Sex: Male
  Weight: 106.5 kg

DRUGS (16)
  1. DAPTOMYCIN. [Suspect]
     Active Substance: DAPTOMYCIN
     Indication: ENTEROCOCCAL BACTERAEMIA
     Route: 042
  2. MICAFUNGIN. [Concomitant]
     Active Substance: MICAFUNGIN SODIUM
     Dates: start: 20200801
  3. SULFAMETHOXAZOLE?TRIMETHOPRIM [Concomitant]
     Active Substance: SULFAMETHOXAZOLE\TRIMETHOPRIM
     Dates: start: 20200717
  4. INSULIN LISPRO [Concomitant]
     Active Substance: INSULIN LISPRO
     Dates: start: 20200701
  5. METHYLNALTREXONE [Concomitant]
     Active Substance: METHYLNALTREXONE
     Dates: start: 20200730
  6. VALACYCLOVIR [Concomitant]
     Active Substance: VALACYCLOVIR HYDROCHLORIDE
     Dates: start: 20200701
  7. GRANIX [Concomitant]
     Active Substance: TBO-FILGRASTIM
     Dates: start: 20200730
  8. LIDOCAINE PATCH [Concomitant]
     Active Substance: LIDOCAINE
     Dates: start: 20200719
  9. DAPTOMYCIN. [Suspect]
     Active Substance: DAPTOMYCIN
     Indication: ENTEROCOCCAL BACTERAEMIA
     Route: 042
  10. METHADONE [Concomitant]
     Active Substance: METHADONE HYDROCHLORIDE
     Dates: start: 20200801
  11. GABAPENTIN. [Concomitant]
     Active Substance: GABAPENTIN
     Dates: start: 20200717
  12. MEROPENEM. [Concomitant]
     Active Substance: MEROPENEM
     Dates: start: 20200730
  13. DIAZEPAM. [Concomitant]
     Active Substance: DIAZEPAM
     Dates: start: 20200803
  14. DOCUSATE [Concomitant]
     Active Substance: DOCUSATE
     Dates: start: 20200709
  15. PREDNISONE. [Concomitant]
     Active Substance: PREDNISONE
     Dates: start: 20200717
  16. TIZANIDINE. [Concomitant]
     Active Substance: TIZANIDINE
     Dates: start: 20200725

REACTIONS (4)
  - Rash [None]
  - Pyrexia [None]
  - Chills [None]
  - Wheezing [None]

NARRATIVE: CASE EVENT DATE: 20200803
